FAERS Safety Report 6269526-2 (Version None)
Quarter: 2009Q3

REPORT INFORMATION
  Report Type: 
  Country: None (occurrence: None)
  Receive Date: 20090715
  Receipt Date: 20090313
  Transmission Date: 20100115
  Serious: No
  Sender: FDA-Public Use
  Company Number: US-TYCO HEALTHCARE/MALLINCKRODT-T200900679

PATIENT
  Sex: Female
  Weight: 130 kg

DRUGS (7)
  1. OXYCODONE HCL [Suspect]
     Indication: BACK PAIN
     Dosage: 30 MG, QID
     Route: 048
     Dates: start: 20090201, end: 20090201
  2. OXYCODONE HCL [Suspect]
     Indication: ARTHRALGIA
  3. HYDROMORPHONE HCL [Concomitant]
     Indication: BREAKTHROUGH PAIN
     Dosage: 16 MG, QID
     Route: 048
  4. OXYCONTIN [Concomitant]
     Indication: BREAKTHROUGH PAIN
     Dosage: 40 MG, BID
     Route: 048
  5. CATAPRES                           /00171101/ [Concomitant]
     Indication: BLOOD PRESSURE
     Dosage: 100 MG, QD
     Route: 062
  6. THYROID HORMONES [Concomitant]
     Indication: THYROID THERAPY
     Dosage: UNK
     Route: 048
     Dates: start: 20090101
  7. MELATONIN [Concomitant]
     Dosage: 5 MG, UNK
     Route: 048

REACTIONS (3)
  - FLUID RETENTION [None]
  - HYPERHIDROSIS [None]
  - OEDEMA PERIPHERAL [None]
